FAERS Safety Report 7309936-5 (Version None)
Quarter: 2011Q1

REPORT INFORMATION
  Report Type: 
  Country: None (occurrence: None)
  Receive Date: 20110224
  Receipt Date: 20110209
  Transmission Date: 20110831
  Serious: Yes (Other)
  Sender: FDA-Public Use
  Company Number: US-CELGENEUS-163-21880-11021641

PATIENT
  Sex: Female

DRUGS (8)
  1. OXYCODONE [Concomitant]
     Route: 065
  2. POTASSIUM [Concomitant]
     Route: 065
  3. REVLIMID [Suspect]
     Indication: MULTIPLE MYELOMA
     Route: 048
     Dates: start: 20101221
  4. FENTANYL-100 [Concomitant]
     Route: 065
  5. HYZAAR [Concomitant]
     Route: 065
  6. EVISTA [Concomitant]
     Route: 065
  7. VITAMIN B [Concomitant]
     Route: 065
  8. DEXAMETHASONE [Concomitant]
     Route: 065

REACTIONS (1)
  - PATHOLOGICAL FRACTURE [None]
